FAERS Safety Report 15931129 (Version 1)
Quarter: 2019Q1

REPORT INFORMATION
  Report Type: Spontaneous
  Country: FR (occurrence: FR)
  Receive Date: 20190207
  Receipt Date: 20190207
  Transmission Date: 20190417
  Serious: Yes (Hospitalization)
  Sender: FDA-Public Use
  Company Number: FR-TEVA-2019-FR-1006361

PATIENT
  Age: 85 Year
  Sex: Male

DRUGS (8)
  1. METFORMINE ARROW 1000 MG, COMPRIM? PELLICUL? S?CABLE [Suspect]
     Active Substance: METFORMIN HYDROCHLORIDE
     Indication: TYPE 2 DIABETES MELLITUS
     Dosage: 3 DOSAGE FORMS DAILY;
     Route: 048
  2. TIMOFEROL, G?LULE [Suspect]
     Active Substance: ASCORBIC ACID\FERROUS SULFATE
     Indication: PRODUCT USED FOR UNKNOWN INDICATION
     Dosage: UNSPECIFIED
     Route: 048
     Dates: end: 20190104
  3. SEROPRAM (CITALOPRAM HYDROBROMIDE) [Suspect]
     Active Substance: CITALOPRAM HYDROBROMIDE
     Indication: PRODUCT USED FOR UNKNOWN INDICATION
     Dosage: 1 DOSAGE FORMS DAILY;
     Route: 048
  4. JANUVIA [Suspect]
     Active Substance: SITAGLIPTIN PHOSPHATE
     Indication: TYPE 2 DIABETES MELLITUS
     Dosage: 1 DOSAGE FORMS DAILY;
     Route: 048
  5. ATORVASTATINE ARROW 40 MG, COMPRIM? PELLICUL? [Suspect]
     Active Substance: ATORVASTATIN
     Indication: DYSLIPIDAEMIA
     Dosage: 1 DOSAGE FORMS DAILY;
     Route: 048
  6. COUMADINE 2 MG, COMPRIM? S?CABLE [Suspect]
     Active Substance: WARFARIN SODIUM
     Indication: PRODUCT USED FOR UNKNOWN INDICATION
     Dosage: 1 DOSAGE FORMS DAILY;
     Route: 048
     Dates: end: 20190108
  7. ALLOPURINOL. [Suspect]
     Active Substance: ALLOPURINOL
     Indication: PRODUCT USED FOR UNKNOWN INDICATION
     Dosage: UNSPECIFIED
     Route: 048
     Dates: end: 20190104
  8. FUROSEMIDE ARROW 40 MG, COMPRIM? S?CABLE [Suspect]
     Active Substance: FUROSEMIDE
     Indication: PRODUCT USED FOR UNKNOWN INDICATION
     Dosage: 1 DOSAGE FORMS DAILY;
     Dates: end: 20190108

REACTIONS (1)
  - Pancreatitis acute [Not Recovered/Not Resolved]

NARRATIVE: CASE EVENT DATE: 20190104
